FAERS Safety Report 4857655-7 (Version None)
Quarter: 2005Q4

REPORT INFORMATION
  Report Type: 
  Country: None (occurrence: None)
  Receive Date: 20051219
  Receipt Date: 20050602
  Transmission Date: 20060501
  Serious: No
  Sender: FDA-Public Use
  Company Number: US-GLAXOSMITHKLINE-A0560914A

PATIENT
  Age: 65 Year
  Sex: Female
  Weight: 81 kg

DRUGS (12)
  1. NICODERM CQ [Suspect]
     Dates: start: 20050414, end: 20050531
  2. PREDNISONE TAB [Concomitant]
     Indication: GRANULOMA
     Route: 048
  3. DIAZEPAM [Concomitant]
     Indication: ANXIETY
     Route: 048
  4. FLEXERIL [Concomitant]
     Route: 048
  5. FAMOTIDINE [Concomitant]
     Route: 048
  6. MULTIVITAMIN [Concomitant]
     Route: 048
  7. CALCIUM WITH VITAMIN D [Concomitant]
     Route: 048
  8. ASCORBIC ACID [Concomitant]
  9. CO Q10 [Concomitant]
  10. SELENIUM SULFIDE [Concomitant]
  11. VIT B12 [Concomitant]
  12. NICOTROL [Concomitant]
     Route: 055

REACTIONS (7)
  - APPLICATION SITE BRUISING [None]
  - APPLICATION SITE DERMATITIS [None]
  - APPLICATION SITE ERYTHEMA [None]
  - APPLICATION SITE PRURITUS [None]
  - EMPHYSEMA [None]
  - HAEMOPTYSIS [None]
  - SPUTUM DISCOLOURED [None]
